FAERS Safety Report 7593460-9 (Version None)
Quarter: 2011Q3

REPORT INFORMATION
  Report Type: 
  Country: None (occurrence: None)
  Receive Date: 20110706
  Receipt Date: 20110624
  Transmission Date: 20111222
  Serious: Yes (Other)
  Sender: FDA-Public Use
  Company Number: DE-AMGEN-DEUSP2011025669

PATIENT

DRUGS (10)
  1. NPLATE [Suspect]
     Dosage: 100 A?G, UNK
     Dates: start: 20110204
  2. LISINOPRIL [Concomitant]
  3. NPLATE [Suspect]
     Dosage: 250 A?G, UNK
     Dates: start: 20110228, end: 20110311
  4. NPLATE [Suspect]
     Indication: PRODUCT USED FOR UNKNOWN INDICATION
     Dosage: UNK UNK, QWK
     Route: 058
     Dates: start: 20110204, end: 20110318
  5. NPLATE [Suspect]
     Dosage: 350 A?G, UNK
     Dates: end: 20110318
  6. NPLATE [Suspect]
     Dosage: 200 A?G, UNK
     Dates: start: 20110218
  7. NPLATE [Suspect]
     Dosage: 100 A?G, UNK
     Dates: end: 20110211
  8. ZOCOR [Concomitant]
  9. OXYGESIC [Concomitant]
  10. NEBIVOLOL HCL [Concomitant]

REACTIONS (5)
  - BEDRIDDEN [None]
  - PAIN IN EXTREMITY [None]
  - INFLUENZA [None]
  - FATIGUE [None]
  - BONE PAIN [None]
